FAERS Safety Report 7757373-1 (Version None)
Quarter: 2011Q3

REPORT INFORMATION
  Report Type: 
  Country: None (occurrence: None)
  Receive Date: 20110916
  Receipt Date: 20110201
  Transmission Date: 20111222
  Serious: Yes (Other)
  Sender: FDA-Public Use
  Company Number: US-BAYER-2011-011795

PATIENT
  Age: 31 Year
  Sex: Male

DRUGS (1)
  1. MAGNEVIST [Suspect]
     Dosage: 15 ML, ONCE
     Route: 042

REACTIONS (5)
  - SNEEZING [None]
  - URTICARIA [None]
  - ERYTHEMA [None]
  - HYPERSENSITIVITY [None]
  - DYSPNOEA [None]
